FAERS Safety Report 17362085 (Version 1)
Quarter: 2020Q1

REPORT INFORMATION
  Report Type: Spontaneous
  Country: US (occurrence: US)
  Receive Date: 20200203
  Receipt Date: 20200203
  Transmission Date: 20200409
  Serious: Yes (Other)
  Sender: FDA-Public Use
  Company Number: US-PFIZER INC-2020043662

PATIENT
  Age: 70 Year
  Sex: Female
  Weight: 47.63 kg

DRUGS (1)
  1. PREMARIN [Suspect]
     Active Substance: ESTROGENS, CONJUGATED
     Dosage: 0.625 MG, ONCE A DAY
     Route: 048

REACTIONS (2)
  - Drug dependence [Unknown]
  - Feeling abnormal [Unknown]
